FAERS Safety Report 17909620 (Version 1)
Quarter: 2020Q2

REPORT INFORMATION
  Report Type: Spontaneous
  Country: FR (occurrence: FR)
  Receive Date: 20200618
  Receipt Date: 20200618
  Transmission Date: 20200714
  Serious: Yes (Death)
  Sender: FDA-Public Use
  Company Number: FR-ROCHE-2623007

PATIENT
  Age: 70 Year
  Sex: Male

DRUGS (2)
  1. RITUXIMAB. [Suspect]
     Active Substance: RITUXIMAB
     Indication: IMMUNE THROMBOCYTOPENIA
     Dosage: ONE COURSE OF THERAPY.
     Route: 041
  2. VINCRISTINE [Suspect]
     Active Substance: VINCRISTINE
     Indication: IMMUNE THROMBOCYTOPENIA
     Route: 065

REACTIONS (2)
  - Enterococcal infection [Fatal]
  - Lung disorder [Fatal]
